FAERS Safety Report 9135120 (Version 3)
Quarter: 2013Q2

REPORT INFORMATION
  Report Type: Spontaneous
  Country: US (occurrence: US)
  Receive Date: 20130304
  Receipt Date: 20130520
  Transmission Date: 20140414
  Serious: Yes (Hospitalization)
  Sender: FDA-Public Use
  Company Number: US-SANOFI-AVENTIS-2013SA008339

PATIENT
  Age: 40 Year
  Sex: Female
  Weight: 101.6 kg

DRUGS (7)
  1. AUBAGIO [Suspect]
     Indication: MULTIPLE SCLEROSIS
     Route: 048
     Dates: start: 20130118
  2. TRAMADOL HYDROCHLORIDE [Concomitant]
     Indication: PAIN
  3. TOPIRAMATE [Concomitant]
     Indication: HEADACHE
  4. GABAPENTIN [Concomitant]
     Indication: NEURALGIA
  5. CITALOPRAM [Concomitant]
  6. CYCLOBENZAPRINE [Concomitant]
  7. MELATONIN [Concomitant]

REACTIONS (3)
  - Chest pain [Unknown]
  - Chest discomfort [Unknown]
  - Heart rate increased [Unknown]
